FAERS Safety Report 25284201 (Version 1)
Quarter: 2025Q2

REPORT INFORMATION
  Report Type: Spontaneous
  Country: RO (occurrence: RO)
  Receive Date: 20250508
  Receipt Date: 20250508
  Transmission Date: 20250717
  Serious: Yes (Other)
  Sender: TEVA
  Company Number: None

PATIENT
  Age: 48 Year
  Sex: Female
  Weight: 58 kg

DRUGS (3)
  1. FLUCONAZOLE [Suspect]
     Active Substance: FLUCONAZOLE
     Indication: Candida infection
     Route: 065
     Dates: start: 20250411, end: 20250411
  2. FLUCONAZOLE [Suspect]
     Active Substance: FLUCONAZOLE
     Indication: Candida infection
     Route: 065
     Dates: start: 20250411, end: 20250411
  3. DOXYCYCLINE [Concomitant]
     Active Substance: DOXYCYCLINE
     Indication: Product used for unknown indication
     Route: 065

REACTIONS (4)
  - Rash [Recovering/Resolving]
  - Swelling of eyelid [Recovering/Resolving]
  - Lip swelling [Recovering/Resolving]
  - Rash vesicular [Recovering/Resolving]

NARRATIVE: CASE EVENT DATE: 20250411
